FAERS Safety Report 8822109 (Version 2)
Quarter: 2012Q4

REPORT INFORMATION
  Report Type: 
  Country: JP (occurrence: JP)
  Receive Date: 20121003
  Receipt Date: 20121030
  Transmission Date: 20130627
  Serious: Yes (Other)
  Sender: FDA-Public Use
  Company Number: JP-JNJFOC-20121001351

PATIENT
  Age: 68 Year
  Sex: Male
  Weight: 68 kg

DRUGS (7)
  1. XARELTO [Suspect]
     Indication: PRODUCT USED FOR UNKNOWN INDICATION
     Route: 048
     Dates: start: 20120921, end: 20120924
  2. XARELTO [Suspect]
     Indication: PRODUCT USED FOR UNKNOWN INDICATION
     Route: 048
     Dates: start: 20120925, end: 20120926
  3. GOREI-SAN [Concomitant]
     Route: 048
     Dates: start: 20120920
  4. CIBENOL [Concomitant]
     Route: 048
  5. VASOLAN [Concomitant]
     Route: 048
  6. ADALAT CR [Concomitant]
     Route: 048
  7. DIOVAN [Concomitant]
     Route: 048

REACTIONS (1)
  - Renal impairment [Recovering/Resolving]
